FAERS Safety Report 4356287-7 (Version None)
Quarter: 2004Q2

REPORT INFORMATION
  Report Type: 
  Country: None (occurrence: None)
  Receive Date: 20040506
  Receipt Date: 20040427
  Transmission Date: 20050107
  Serious: Yes (Hospitalization)
  Sender: FDA-Public Use
  Company Number: 2004028744

PATIENT
  Age: 79 Year
  Sex: Female
  Weight: 77 kg

DRUGS (6)
  1. ATORVASTATIN (ATORVASTATIN) [Suspect]
     Indication: HYPERCHOLESTEROLAEMIA
     Dosage: 10 MG (DAILY), ORAL
     Route: 048
     Dates: start: 20040311, end: 20040401
  2. ATENOLOL [Concomitant]
  3. LEKOVIT CA (CALCIUM CARBONATE, COLECALCIFEROL) [Concomitant]
  4. QUINAPRIL HCL [Concomitant]
  5. TRIMIPRAMINE MALEATE [Concomitant]
  6. METHYLDOPA [Concomitant]

REACTIONS (1)
  - PITYRIASIS ROSEA [None]
